FAERS Safety Report 7415815-5 (Version None)
Quarter: 2011Q2

REPORT INFORMATION
  Report Type: 
  Country: None (occurrence: None)
  Receive Date: 20110414
  Receipt Date: 20110405
  Transmission Date: 20111010
  Serious: Yes (Hospitalization)
  Sender: FDA-Public Use
  Company Number: FR-ASTRAZENECA-2011SE19413

PATIENT
  Sex: Male

DRUGS (12)
  1. FUROSEMIDE [Suspect]
     Route: 048
  2. LEVOTHYROX [Suspect]
     Route: 048
  3. SYMBICORT [Suspect]
     Dosage: 320/9 UG PER DOSE, ONE INHALATION TWICE PER DAY
     Route: 055
  4. MICARDIS [Suspect]
     Route: 048
     Dates: end: 20101029
  5. AMIODARONE [Suspect]
     Dosage: ONE TABLET FIVE DAYS PER WEEK
     Route: 048
  6. FORLAX [Suspect]
     Route: 048
  7. PERMIXON [Interacting]
     Route: 048
  8. PRAVASTATIN SODIUM [Suspect]
     Route: 048
  9. OMEPRAZOLE [Suspect]
     Route: 048
  10. PLAVIX [Suspect]
     Route: 048
  11. BROMAZEPAM [Suspect]
     Route: 048
  12. MIRTAZAPINE [Suspect]
     Route: 048
     Dates: end: 20101001

REACTIONS (1)
  - NIGHT SWEATS [None]
